FAERS Safety Report 5585159-5 (Version None)
Quarter: 2008Q1

REPORT INFORMATION
  Report Type: 
  Country: None (occurrence: None)
  Receive Date: 20080104
  Receipt Date: 20080104
  Transmission Date: 20080703
  Serious: Yes (Other)
  Sender: FDA-Public Use
  Company Number: None

PATIENT
  Age: 50 Year
  Sex: Male
  Weight: 108.8633 kg

DRUGS (1)
  1. PRILOSEC OTC [Suspect]
     Indication: DYSPEPSIA
     Dosage: 1 TABLET 1 A DAY PO
     Route: 048
     Dates: start: 20071230, end: 20071231

REACTIONS (3)
  - DIZZINESS [None]
  - PALPITATIONS [None]
  - SYNCOPE [None]
